FAERS Safety Report 17527139 (Version 1)
Quarter: 2020Q1

REPORT INFORMATION
  Report Type: Spontaneous
  Country: US (occurrence: US)
  Receive Date: 20200310
  Receipt Date: 20200310
  Transmission Date: 20200409
  Serious: No
  Sender: FDA-Public Use
  Company Number: US-BAUSCH-BL-2020-007223

PATIENT
  Age: 61 Year
  Sex: Female

DRUGS (2)
  1. PLENVU [Suspect]
     Active Substance: ASCORBIC ACID\POLYETHYLENE GLYCOL 3350\POTASSIUM CHLORIDE\SODIUM ASCORBATE\SODIUM CHLORIDE\SODIUM SULFATE
     Indication: BOWEL PREPARATION
     Dosage: TWO DAY REGIMEN
     Route: 048
     Dates: start: 20200302, end: 20200303
  2. VITAMINS [Concomitant]
     Active Substance: VITAMINS
     Indication: PRODUCT USED FOR UNKNOWN INDICATION

REACTIONS (2)
  - Vomiting [Recovered/Resolved]
  - Nausea [Recovered/Resolved]

NARRATIVE: CASE EVENT DATE: 20200302
